FAERS Safety Report 6869746-X (Version None)
Quarter: 2010Q3

REPORT INFORMATION
  Report Type: 
  Country: None (occurrence: None)
  Receive Date: 20100722
  Receipt Date: 20080823
  Transmission Date: 20110219
  Serious: No
  Sender: FDA-Public Use
  Company Number: US-PFIZER INC-2008070860

PATIENT
  Sex: Female
  Weight: 65 kg

DRUGS (4)
  1. CHANTIX [Suspect]
     Indication: SMOKING CESSATION THERAPY
     Route: 048
     Dates: start: 20080801
  2. ANTIEPILEPTICS [Concomitant]
     Indication: CONVULSION
  3. ANTIHYPERTENSIVES [Concomitant]
     Indication: HYPERTENSION
  4. NEXIUM [Concomitant]
     Indication: AORTIC ANEURYSM

REACTIONS (3)
  - MALAISE [None]
  - NAUSEA [None]
  - VOMITING [None]
